FAERS Safety Report 8592250-8 (Version None)
Quarter: 2012Q3

REPORT INFORMATION
  Report Type: 
  Country: None (occurrence: None)
  Receive Date: 20120814
  Receipt Date: 20120803
  Transmission Date: 20120928
  Serious: Yes (Hospitalization)
  Sender: FDA-Public Use
  Company Number: US-PFIZER INC-2012114895

PATIENT
  Age: 72 Year
  Sex: Male
  Weight: 64.8 kg

DRUGS (16)
  1. FLUOROURACIL [Suspect]
     Dosage: 455 MG, WEEKLY (1/W)
     Dates: start: 20120507
  2. DEXAMETHASONE [Concomitant]
     Indication: NAUSEA
     Dosage: UNK
     Dates: start: 20120130
  3. ONDANSETRON [Concomitant]
     Indication: NAUSEA
     Dosage: UNK
     Dates: start: 20120130
  4. TRAZODONE [Concomitant]
     Indication: INSOMNIA
  5. MAGNESIUM OXIDE [Concomitant]
     Indication: HYPOMAGNESAEMIA
     Dosage: UNK
     Dates: start: 20120130
  6. FLUOROURACIL [Suspect]
     Indication: HEAD AND NECK CANCER
     Dosage: 455 MG, WEEKLY
     Route: 042
     Dates: start: 20120109, end: 20120416
  7. LORAZEPAM [Concomitant]
     Indication: NAUSEA
     Dosage: UNK
     Dates: start: 20120202
  8. METFORMIN [Concomitant]
     Indication: DIABETES MELLITUS
     Dosage: UNK
  9. ROSUVASTATIN [Concomitant]
     Indication: BLOOD CHOLESTEROL ABNORMAL
     Dosage: UNK
     Dates: start: 20071226
  10. TRAZODONE [Concomitant]
     Indication: DEPRESSION
     Dosage: UNK
     Dates: start: 20111026
  11. FLUOROURACIL [Suspect]
     Indication: HEAD AND NECK CANCER
     Dosage: 910 MG, DAY FOR 4DAYS Q 3 WEEKS
     Route: 042
     Dates: start: 20120130
  12. MINOCYCLINE HYDROCHLORIDE [Concomitant]
     Indication: RASH
     Dosage: UNK
     Dates: start: 20120117
  13. METOPROLOL TARTRATE AND HYDROCHLOROTHIAZIDE [Concomitant]
     Indication: BLOOD PRESSURE ABNORMAL
     Dosage: UNK
     Dates: start: 20071226
  14. CISPLATIN [Suspect]
     Indication: HEAD AND NECK CANCER
     Dosage: 91 MG, EVERY 3 WEEKS
     Route: 042
     Dates: start: 20120130
  15. LORAZEPAM [Concomitant]
     Indication: VOMITING
  16. PENTOXIFYLLINE [Concomitant]
     Indication: CARDIOVASCULAR INSUFFICIENCY
     Dosage: UNK
     Dates: start: 20120109

REACTIONS (4)
  - FALL [None]
  - DEHYDRATION [None]
  - DYSPHAGIA [None]
  - SYNCOPE [None]
